FAERS Safety Report 6317895-7 (Version None)
Quarter: 2009Q3

REPORT INFORMATION
  Report Type: 
  Country: None (occurrence: None)
  Receive Date: 20090821
  Receipt Date: 20090817
  Transmission Date: 20100115
  Serious: Yes (Hospitalization, Other)
  Sender: FDA-Public Use
  Company Number: US-BAYER-200928751GPV

PATIENT
  Age: 64 Year
  Sex: Male
  Weight: 69 kg

DRUGS (3)
  1. SORAFENIB [Suspect]
     Indication: HEPATIC NEOPLASM MALIGNANT
     Dosage: TOTAL DAILY DOSE: 800 MG
     Route: 048
     Dates: start: 20090706, end: 20090720
  2. FAMOTIDINE [Concomitant]
     Indication: ABDOMINAL DISCOMFORT
     Dates: start: 20090728
  3. DOLOGESIC [Concomitant]
     Indication: BACK PAIN
     Dosage: TOTAL DAILY DOSE: 8 DF
     Dates: start: 20090724

REACTIONS (3)
  - ANAEMIA [None]
  - DUODENAL ULCER [None]
  - PALMAR-PLANTAR ERYTHRODYSAESTHESIA SYNDROME [None]
